FAERS Safety Report 7038285-8 (Version None)
Quarter: 2010Q4

REPORT INFORMATION
  Report Type: 
  Country: None (occurrence: None)
  Receive Date: 20101011
  Receipt Date: 20090924
  Transmission Date: 20110411
  Serious: No
  Sender: FDA-Public Use
  Company Number: US-PFIZER INC-2009268253

PATIENT
  Sex: Female
  Weight: 79.365 kg

DRUGS (2)
  1. NEURONTIN [Suspect]
     Indication: FIBROMYALGIA
     Dosage: UNK
     Dates: start: 20030101, end: 20040101
  2. NEURONTIN [Suspect]
     Indication: ARTHRITIS

REACTIONS (3)
  - DRUG INEFFECTIVE [None]
  - FEELING ABNORMAL [None]
  - SOMNOLENCE [None]
